FAERS Safety Report 14122511 (Version 1)
Quarter: 2017Q4

REPORT INFORMATION
  Report Type: Spontaneous
  Country: US (occurrence: None)
  Receive Date: 20171024
  Receipt Date: 20171024
  Transmission Date: 20180321
  Serious: Yes (Disabling)
  Sender: FDA-Public Use
  Company Number: None

PATIENT
  Age: 57 Year
  Sex: Female
  Weight: 69.85 kg

DRUGS (6)
  1. ZOLOFT [Concomitant]
     Active Substance: SERTRALINE HYDROCHLORIDE
  2. CALCIUM [Concomitant]
     Active Substance: CALCIUM
  3. DEXILANT [Concomitant]
     Active Substance: DEXLANSOPRAZOLE
  4. TYLENOL [Concomitant]
     Active Substance: ACETAMINOPHEN
  5. CEPHALXEIN (KEFLEX) [Concomitant]
  6. TRAZODONE [Suspect]
     Active Substance: TRAZODONE HYDROCHLORIDE
     Indication: INSOMNIA
     Dosage: 1/2 - 2 TABS
     Route: 048
     Dates: start: 20170829, end: 20170922

REACTIONS (7)
  - Disturbance in attention [None]
  - Flatulence [None]
  - Dizziness [None]
  - Restlessness [None]
  - Confusional state [None]
  - Headache [None]
  - Insomnia [None]

NARRATIVE: CASE EVENT DATE: 201709
